FAERS Safety Report 4988311-2 (Version None)
Quarter: 2006Q2

REPORT INFORMATION
  Report Type: 
  Country: None (occurrence: None)
  Receive Date: 20060425
  Receipt Date: 20060414
  Transmission Date: 20061013
  Serious: Yes (Hospitalization)
  Sender: FDA-Public Use
  Company Number: 2005173216

PATIENT
  Age: 61 Year
  Sex: Male
  Weight: 62 kg

DRUGS (7)
  1. SU-011,248 (SUNITINIB MALATE) SUTENT [Suspect]
     Indication: METASTATIC RENAL CELL CARCINOMA
     Dosage: 50 MG, 1 IN 1 D, ORAL
     Route: 048
     Dates: start: 20051128
  2. PREDNISOLONE [Concomitant]
  3. VALPROIC ACID [Concomitant]
  4. PANTOPRAZOLE SODIUM [Concomitant]
  5. ALLOPURINOL [Concomitant]
  6. INSULIN [Concomitant]
  7. FORLAX (MACROGOL) [Concomitant]

REACTIONS (9)
  - CONFUSIONAL STATE [None]
  - CONVULSION [None]
  - DEHYDRATION [None]
  - ENCEPHALITIS [None]
  - HYPOGLYCAEMIA [None]
  - MUCOSAL INFLAMMATION [None]
  - PLATELET COUNT DECREASED [None]
  - STOMATITIS [None]
  - WHITE BLOOD CELL COUNT DECREASED [None]
